FAERS Safety Report 7236998-6 (Version None)
Quarter: 2011Q1

REPORT INFORMATION
  Report Type: 
  Country: None (occurrence: None)
  Receive Date: 20110121
  Receipt Date: 20110111
  Transmission Date: 20110831
  Serious: No
  Sender: FDA-Public Use
  Company Number: US-BIOGENIDEC-2010BI042841

PATIENT
  Age: 25 Year
  Sex: Female

DRUGS (1)
  1. TYSABRI [Suspect]
     Indication: MULTIPLE SCLEROSIS
     Route: 042
     Dates: start: 20100826

REACTIONS (8)
  - HEART RATE INCREASED [None]
  - ANXIETY [None]
  - THROAT IRRITATION [None]
  - POOR QUALITY SLEEP [None]
  - DIPLOPIA [None]
  - ACNE [None]
  - INSOMNIA [None]
  - FATIGUE [None]
